FAERS Safety Report 7274469-1 (Version None)
Quarter: 2011Q1

REPORT INFORMATION
  Report Type: 
  Country: None (occurrence: None)
  Receive Date: 20110201
  Receipt Date: 20110201
  Transmission Date: 20110831
  Serious: Yes (Hospitalization)
  Sender: FDA-Public Use
  Company Number: None

PATIENT
  Sex: Male
  Weight: 73.18 kg

DRUGS (2)
  1. CISPLATIN [Suspect]
     Dosage: 46 MG
     Dates: end: 20110111
  2. TAXOL [Suspect]
     Dosage: 90 MG
     Dates: end: 20110111

REACTIONS (13)
  - VOMITING [None]
  - PLATELET COUNT DECREASED [None]
  - NAUSEA [None]
  - HAEMOGLOBIN DECREASED [None]
  - BLOOD ALBUMIN DECREASED [None]
  - BLOOD SODIUM DECREASED [None]
  - URINE KETONE BODY PRESENT [None]
  - BLOOD URINE PRESENT [None]
  - NEUTROPHIL COUNT DECREASED [None]
  - ALANINE AMINOTRANSFERASE INCREASED [None]
  - WHITE BLOOD CELLS URINE POSITIVE [None]
  - PROTEIN URINE PRESENT [None]
  - DYSPHAGIA [None]
